FAERS Safety Report 13806176 (Version 1)
Quarter: 2017Q3

REPORT INFORMATION
  Report Type: Spontaneous
  Country: JP (occurrence: JP)
  Receive Date: 20170728
  Receipt Date: 20170728
  Transmission Date: 20171127
  Serious: Yes (Other)
  Sender: FDA-Public Use
  Company Number: JP-PFIZER INC-2017324472

PATIENT

DRUGS (1)
  1. SELARA [Suspect]
     Active Substance: EPLERENONE
     Indication: HYPERTENSION
     Dosage: 100 MG, UNK
     Route: 048
     Dates: start: 2015

REACTIONS (1)
  - Creatinine renal clearance decreased [Unknown]
